FAERS Safety Report 10468255 (Version 1)
Quarter: 2014Q3

REPORT INFORMATION
  Report Type: Spontaneous
  Country: BR (occurrence: BR)
  Receive Date: 20140922
  Receipt Date: 20140922
  Transmission Date: 20150326
  Serious: Yes (Other)
  Sender: FDA-Public Use
  Company Number: BR-PFIZER INC-2014258416

PATIENT
  Age: 62 Year
  Sex: Female
  Weight: 69 kg

DRUGS (4)
  1. FRONTAL [Suspect]
     Active Substance: ALPRAZOLAM
     Indication: STRESS
  2. ROSUVASTATIN [Concomitant]
     Active Substance: ROSUVASTATIN
     Indication: BLOOD CHOLESTEROL ABNORMAL
     Dosage: 20 MG, DAILY (AT NIGHT)
     Dates: start: 2008
  3. LOTAR [Concomitant]
     Active Substance: AMLODIPINE\LOSARTAN
     Indication: BLOOD PRESSURE ABNORMAL
     Dosage: ONE TABLET (^5/100 MG^) PER DAY, WHEN FASTING
     Dates: start: 2008
  4. FRONTAL [Suspect]
     Active Substance: ALPRAZOLAM
     Indication: ANXIETY
     Dosage: 0.25 MG (HALF A 0.5MG TABLET), DAILY
     Route: 048
     Dates: start: 2006

REACTIONS (1)
  - Venous occlusion [Unknown]

NARRATIVE: CASE EVENT DATE: 2008
